FAERS Safety Report 12158458 (Version 1)
Quarter: 2016Q1

REPORT INFORMATION
  Report Type: Spontaneous
  Country: US (occurrence: US)
  Receive Date: 20160308
  Receipt Date: 20160308
  Transmission Date: 20160526
  Serious: No
  Sender: FDA-Public Use
  Company Number: US-JNJFOC-20160123399

PATIENT
  Age: 78 Year
  Sex: Male

DRUGS (17)
  1. COENZYME Q10 [Concomitant]
     Active Substance: UBIDECARENONE
     Indication: SUPPLEMENTATION THERAPY
     Dosage: 30-100 MG QD
     Route: 048
  2. GLUCOSAMINE COMPLEX WITH CHONDROITIN [Concomitant]
     Indication: SUPPLEMENTATION THERAPY
     Dosage: QD
     Route: 048
  3. CALCIUM W/MAGNESIUM [Concomitant]
     Active Substance: CALCIUM\MAGNESIUM
     Indication: SUPPLEMENTATION THERAPY
     Dosage: 1000/500 MG
     Route: 048
  4. SAW PALMETTO [Concomitant]
     Active Substance: SAW PALMETTO
     Indication: SUPPLEMENTATION THERAPY
     Route: 048
  5. CAMELLIA SINENSIS [Concomitant]
     Active Substance: GREEN TEA LEAF
     Indication: SUPPLEMENTATION THERAPY
     Dosage: 400-500 MG QD
     Route: 048
  6. ALLIUM SATIVUM BULB [Concomitant]
     Active Substance: GARLIC
     Indication: SUPPLEMENTATION THERAPY
  7. IMBRUVICA [Suspect]
     Active Substance: IBRUTINIB
     Indication: CHRONIC LYMPHOCYTIC LEUKAEMIA
     Route: 048
     Dates: start: 201507
  8. ENALAPRIL [Concomitant]
     Active Substance: ENALAPRIL
     Indication: BLOOD PRESSURE MANAGEMENT
     Route: 048
     Dates: start: 1991
  9. VITAMIN C [Concomitant]
     Active Substance: ASCORBIC ACID
     Indication: SUPPLEMENTATION THERAPY
     Route: 048
  10. MONASCUS PURPUREUS [Concomitant]
     Active Substance: RED YEAST
     Indication: SUPPLEMENTATION THERAPY
     Route: 048
  11. CLOBETASOL PROPIONATE. [Concomitant]
     Active Substance: CLOBETASOL PROPIONATE
     Indication: PEMPHIGOID
     Route: 061
  12. LACTOBACILLUS ACIDOPHILUS [Concomitant]
     Active Substance: LACTOBACILLUS ACIDOPHILUS
     Indication: SUPPLEMENTATION THERAPY
     Dosage: QD
     Route: 048
  13. DILTIAZEM [Concomitant]
     Active Substance: DILTIAZEM
     Indication: BLOOD PRESSURE MANAGEMENT
     Route: 048
     Dates: start: 1991
  14. MULTI VITAMIN [Concomitant]
     Active Substance: VITAMINS
     Indication: SUPPLEMENTATION THERAPY
     Route: 048
  15. ALLOPURINOL. [Concomitant]
     Active Substance: ALLOPURINOL
     Indication: GOUT
     Route: 048
     Dates: start: 201501
  16. ALLOPURINOL. [Concomitant]
     Active Substance: ALLOPURINOL
     Indication: PROPHYLAXIS
     Route: 048
     Dates: start: 201501
  17. ASPIRIN. [Concomitant]
     Active Substance: ASPIRIN
     Indication: PROPHYLAXIS
     Route: 048

REACTIONS (3)
  - Renal impairment [Unknown]
  - Prescribed underdose [Not Recovered/Not Resolved]
  - Blood pressure fluctuation [Not Recovered/Not Resolved]

NARRATIVE: CASE EVENT DATE: 201507
